FAERS Safety Report 7977825-9 (Version None)
Quarter: 2011Q4

REPORT INFORMATION
  Report Type: 
  Country: None (occurrence: None)
  Receive Date: 20111214
  Receipt Date: 20111130
  Transmission Date: 20120403
  Serious: No
  Sender: FDA-Public Use
  Company Number: US-AMGEN-USASP2011050391

PATIENT
  Age: 41 Year
  Sex: Male

DRUGS (2)
  1. ENBREL [Suspect]
     Indication: PSORIASIS
     Dosage: 50 MG, QWK
     Dates: start: 20080101
  2. HUMIRA [Concomitant]
     Dosage: UNK
     Dates: start: 20100101

REACTIONS (2)
  - INJECTION SITE PAIN [None]
  - PSORIASIS [None]
